FAERS Safety Report 22196365 (Version 2)
Quarter: 2023Q2

REPORT INFORMATION
  Report Type: Report from Study
  Country: BR (occurrence: BR)
  Receive Date: 20230411
  Receipt Date: 20230425
  Transmission Date: 20230722
  Serious: Yes (Other)
  Sender: FDA-Public Use
  Company Number: BR-002147023-NVSC2023BR054006

PATIENT
  Age: 65 Year
  Sex: Female
  Weight: 67.5 kg

DRUGS (1)
  1. KISQALI [Suspect]
     Active Substance: RIBOCICLIB
     Indication: Breast cancer
     Dosage: UNK, QD (3 TABLETS)
     Route: 048
     Dates: start: 202302

REACTIONS (10)
  - Dysentery [Recovered/Resolved]
  - Gastric disorder [Recovered/Resolved]
  - Retching [Recovered/Resolved]
  - Decreased appetite [Recovered/Resolved]
  - Vomiting [Recovered/Resolved]
  - Asthenia [Recovered/Resolved]
  - Hunger [Unknown]
  - Hypersomnia [Recovered/Resolved]
  - Decreased immune responsiveness [Recovering/Resolving]
  - Drug intolerance [Unknown]

NARRATIVE: CASE EVENT DATE: 20230201
